FAERS Safety Report 9826512 (Version 1)
Quarter: 2014Q1

REPORT INFORMATION
  Report Type: Spontaneous
  Country: US (occurrence: None)
  Receive Date: 20140115
  Receipt Date: 20140115
  Transmission Date: 20141002
  Serious: Yes (Other)
  Sender: FDA-Public Use
  Company Number: 2014P1000103

PATIENT
  Age: 53 Year
  Sex: Female

DRUGS (6)
  1. FUROSEMIDE [Suspect]
  2. HYDROCHLOROTHIAZIDE [Suspect]
  3. HYDROMORPHONE [Suspect]
  4. LISINOPRIL [Suspect]
     Dosage: 20 MG
  5. OLMESARTAN [Suspect]
     Dosage: 40 MG QD
  6. CELECOXIB [Suspect]
     Indication: KNEE ARTHROPLASTY
     Dosage: 200 MGX 1

REACTIONS (4)
  - Nephropathy toxic [None]
  - Anuria [None]
  - Renal impairment [None]
  - Blood creatinine increased [None]
